FAERS Safety Report 7752653-8 (Version None)
Quarter: 2011Q3

REPORT INFORMATION
  Report Type: 
  Country: None (occurrence: None)
  Receive Date: 20110915
  Receipt Date: 20110906
  Transmission Date: 20111222
  Serious: Yes (Hospitalization)
  Sender: FDA-Public Use
  Company Number: US-BAYER-2011-024942

PATIENT
  Age: 19 Year
  Sex: Female
  Weight: 81.633 kg

DRUGS (5)
  1. IBUPROFEN [Concomitant]
  2. YAZ [Suspect]
     Indication: PRODUCT USED FOR UNKNOWN INDICATION
     Dosage: UNK
     Dates: start: 20071016, end: 20081220
  3. ANTIBIOTICS [Concomitant]
     Route: 042
  4. OMEPRAZOLE [Concomitant]
     Indication: GASTRITIS
     Dosage: 20 MG, UNK
  5. DARVOCET [Concomitant]
     Indication: PAIN

REACTIONS (9)
  - INJURY [None]
  - BILIARY DYSKINESIA [None]
  - GENERAL PHYSICAL HEALTH DETERIORATION [None]
  - CHOLECYSTITIS CHRONIC [None]
  - ANXIETY [None]
  - SCAR [None]
  - EMOTIONAL DISTRESS [None]
  - GALLBLADDER INJURY [None]
  - PAIN [None]
